FAERS Safety Report 7580851-5 (Version None)
Quarter: 2011Q2

REPORT INFORMATION
  Report Type: 
  Country: None (occurrence: None)
  Receive Date: 20110629
  Receipt Date: 20110624
  Transmission Date: 20111010
  Serious: Yes (Other)
  Sender: FDA-Public Use
  Company Number: US-BRISTOL-MYERS SQUIBB COMPANY-15853963

PATIENT
  Age: 40 Year
  Sex: Male
  Weight: 97 kg

DRUGS (2)
  1. ABILIFY [Suspect]
     Dates: start: 20090101, end: 20110201
  2. LISINOPRIL [Concomitant]

REACTIONS (2)
  - MANIA [None]
  - OBSESSIVE-COMPULSIVE DISORDER [None]
